FAERS Safety Report 23550812 (Version 2)
Quarter: 2024Q1

REPORT INFORMATION
  Report Type: Report from Study
  Country: US (occurrence: US)
  Receive Date: 20240221
  Receipt Date: 20240315
  Transmission Date: 20240409
  Serious: Yes (Other)
  Sender: FDA-Public Use
  Company Number: US-ABBVIE-5644372

PATIENT
  Sex: Female
  Weight: 58 kg

DRUGS (13)
  1. RINVOQ [Suspect]
     Active Substance: UPADACITINIB
     Indication: Rheumatoid arthritis
     Route: 048
     Dates: start: 20230506
  2. RINVOQ [Suspect]
     Active Substance: UPADACITINIB
     Indication: Rheumatoid arthritis
     Route: 048
     Dates: start: 20230601
  3. LIDEX [Concomitant]
     Active Substance: FLUOCINONIDE
     Indication: Product used for unknown indication
     Dosage: APPLY TO AFFECTED AREA OF EARS UMBILICUS , HIPS TWICE A DAY FOR 2 WK AS DIRECTED?FORM STRENGTH: 0...
     Route: 061
     Dates: start: 20200715
  4. TEMOVATE [Concomitant]
     Active Substance: CLOBETASOL PROPIONATE
     Indication: Product used for unknown indication
     Dosage: FORM STRENGTH: 0.05 % ?APPLY TOPICALLY TO THE AFFECTED AREA TWICE DAILY
     Route: 061
     Dates: start: 20230630
  5. MOBIC [Concomitant]
     Active Substance: MELOXICAM
     Indication: Product used for unknown indication
     Dosage: TAKE 1 TABLET (15 MG) BY MOUTH ONCE DAILY.?FORM STRENGTH: 15MG
     Route: 048
     Dates: start: 20230825
  6. PEPCID [Concomitant]
     Active Substance: FAMOTIDINE
     Indication: Product used for unknown indication
     Dosage: TAKE 1 TABLET (40 MG) BY MOUTH AT BEDTIME.?FORM STRENGTH: 40MG
     Route: 048
     Dates: start: 20240226
  7. GOLIMUMAB [Concomitant]
     Active Substance: GOLIMUMAB
     Indication: Product used for unknown indication
     Dosage: INJECT INTO THE VEIN EVERY 8 (EIGHT) WEEKS.
     Route: 042
  8. CULTURELLE [Concomitant]
     Active Substance: LACTOBACILLUS RHAMNOSUS
     Indication: Product used for unknown indication
     Dosage: TAKE 1 CAPSULE BY MOUTH DAILY
     Route: 048
  9. CRESTOR [Concomitant]
     Active Substance: ROSUVASTATIN CALCIUM
     Indication: Product used for unknown indication
     Dosage: FORM STRENGTH: 40MG?TAKE 1 TABLET (40 MG TOTAL) BY MOUTH DAILY
     Route: 048
     Dates: start: 20220505
  10. LYRICA [Concomitant]
     Active Substance: PREGABALIN
     Indication: Product used for unknown indication
     Dosage: TAKE 1 CAPSULE (100 MG) BY MOUTH 2 (TWO) TIMES A DAY?FORM STRENGTH: 100MG
     Route: 048
  11. DELTASONE [Concomitant]
     Active Substance: PREDNISONE
     Indication: Product used for unknown indication
     Dosage: 2 TABS DAILY?FORM STRENGTH: 5MG
     Route: 048
     Dates: start: 20220503
  12. FOSAMAX [Concomitant]
     Active Substance: ALENDRONATE SODIUM
     Indication: Product used for unknown indication
     Dosage: FORM STRENGTH: 35MG?TAKE 1 TABLET (35 MG TOTAL) BY MOUTH EVERY 7 DAYS.
     Route: 048
     Dates: start: 20221028
  13. FOSAMAX [Concomitant]
     Active Substance: ALENDRONATE SODIUM
     Indication: Product used for unknown indication
     Dosage: FORM STRENGTH: 35MG?TAKE 1 TABLET (35 MG TOTAL) BY MOUTH EVERY 7 DAYS.
     Route: 048
     Dates: start: 20230503

REACTIONS (1)
  - Recurrent cancer [Unknown]
